FAERS Safety Report 14513731 (Version 1)
Quarter: 2018Q1

REPORT INFORMATION
  Report Type: Spontaneous
  Country: US (occurrence: US)
  Receive Date: 20180209
  Receipt Date: 20180209
  Transmission Date: 20180509
  Serious: No
  Sender: FDA-Public Use
  Company Number: US-ALLERGAN-1764860US

PATIENT
  Age: 78 Year
  Sex: Female

DRUGS (4)
  1. RESTASIS [Suspect]
     Active Substance: CYCLOSPORINE
     Indication: MACULAR DEGENERATION
     Dosage: 2 GTT, Q12H
     Route: 047
     Dates: start: 20171103, end: 20171106
  2. RESTASIS [Suspect]
     Active Substance: CYCLOSPORINE
     Indication: MEIBOMIANITIS
  3. VITAMINS [Concomitant]
     Active Substance: VITAMINS
  4. RESTASIS [Suspect]
     Active Substance: CYCLOSPORINE
     Indication: DRY EYE

REACTIONS (7)
  - Ocular discomfort [Recovered/Resolved]
  - Eyelid oedema [Recovered/Resolved]
  - Vision blurred [Recovered/Resolved]
  - Off label use [Unknown]
  - Eye irritation [Recovered/Resolved]
  - Eye pain [Recovered/Resolved]
  - Eye pruritus [Recovered/Resolved]

NARRATIVE: CASE EVENT DATE: 20171103
